FAERS Safety Report 21396648 (Version 1)
Quarter: 2022Q3

REPORT INFORMATION
  Report Type: Spontaneous
  Country: US (occurrence: US)
  Receive Date: 20220930
  Receipt Date: 20220930
  Transmission Date: 20221026
  Serious: Yes (Hospitalization, Other)
  Sender: FDA-Public Use
  Company Number: US-PFIZER INC-PV202200066515

PATIENT
  Age: 44 Year
  Sex: Female

DRUGS (1)
  1. METRONIDAZOLE [Suspect]
     Active Substance: METRONIDAZOLE
     Indication: Amoebic dysentery
     Dosage: 750 MG, 3X/DAY FOR SEVEN AND ONE HALF DAYS
     Route: 048
     Dates: start: 19870508, end: 19870515

REACTIONS (11)
  - Brief psychotic disorder, with postpartum onset [Recovered/Resolved]
  - Hallucinations, mixed [Recovered/Resolved]
  - Abdominal pain [Recovered/Resolved]
  - Chest pain [Recovered/Resolved]
  - Nausea [Recovered/Resolved]
  - Eating disorder [Unknown]
  - Hyperventilation [Unknown]
  - Vomiting [Unknown]
  - Emotional distress [Unknown]
  - Delusion [Recovered/Resolved]
  - Head injury [Unknown]

NARRATIVE: CASE EVENT DATE: 19870501
